FAERS Safety Report 16568399 (Version 4)
Quarter: 2019Q3

REPORT INFORMATION
  Report Type: Report from Study
  Country: US (occurrence: US)
  Receive Date: 20190712
  Receipt Date: 20190911
  Transmission Date: 20191004
  Serious: Yes (Hospitalization, Other)
  Sender: FDA-Public Use
  Company Number: US-ACTELION-A-NJ2019-192844

PATIENT
  Sex: Female
  Weight: 67.12 kg

DRUGS (3)
  1. OPSUMIT [Suspect]
     Active Substance: MACITENTAN
     Indication: PULMONARY HYPERTENSION
     Dosage: 10 MG, QD
     Route: 048
  2. ADCIRCA [Concomitant]
     Active Substance: TADALAFIL
  3. TYVASO [Concomitant]
     Active Substance: TREPROSTINIL
     Dosage: 10 BREATHS 4 X DAY

REACTIONS (7)
  - Malaise [Unknown]
  - Liver transplant [Unknown]
  - Dialysis [Unknown]
  - Peripheral swelling [Unknown]
  - Anaemia [Unknown]
  - Headache [Unknown]
  - Pain in extremity [Unknown]
